FAERS Safety Report 4344279-3 (Version None)
Quarter: 2004Q2

REPORT INFORMATION
  Report Type: 
  Country: None (occurrence: None)
  Receive Date: 20040419
  Receipt Date: 20040402
  Transmission Date: 20050107
  Serious: Yes (Death)
  Sender: FDA-Public Use
  Company Number: A04200400272

PATIENT
  Age: 73 Year
  Sex: Female

DRUGS (6)
  1. ARIXTRA [Suspect]
     Indication: KNEE ARTHROPLASTY
     Dosage: 2.5 MG ONCE
     Route: 058
     Dates: start: 20040319
  2. ARIXTRA [Suspect]
     Indication: THROMBOSIS PROPHYLAXIS
     Dosage: 2.5 MG ONCE
     Route: 058
     Dates: start: 20040319
  3. LOW MOLECULAR WEIGHT HEPARIN (HEPARIN-FRACTION) [Concomitant]
  4. NAROPIN [Concomitant]
  5. SUFENTANIL CITRATE [Concomitant]
  6. DIPYRONE TAB [Concomitant]

REACTIONS (3)
  - DRUG INEFFECTIVE [None]
  - PULMONARY EMBOLISM [None]
  - RIGHT VENTRICULAR FAILURE [None]
